FAERS Safety Report 5524265-8 (Version None)
Quarter: 2007Q4

REPORT INFORMATION
  Report Type: 
  Country: None (occurrence: None)
  Receive Date: 20071121
  Receipt Date: 20071112
  Transmission Date: 20080405
  Serious: Yes (Life-Threatening, Hospitalization, Other)
  Sender: FDA-Public Use
  Company Number: JP-PFIZER INC-2007086743

PATIENT
  Sex: Male
  Weight: 52 kg

DRUGS (15)
  1. DOXAZOSIN MESYLATE [Suspect]
     Indication: HYPERTENSION
     Route: 048
     Dates: start: 20070927, end: 20071010
  2. MAXIPIME [Concomitant]
  3. BLOPRESS [Concomitant]
     Route: 048
     Dates: start: 20070728, end: 20071027
  4. PREDONINE [Concomitant]
     Route: 048
     Dates: start: 20070918, end: 20071027
  5. BACTRIM [Concomitant]
  6. ADETPHOS [Concomitant]
     Route: 048
     Dates: start: 20070831, end: 20071027
  7. DRUG, UNSPECIFIED [Concomitant]
  8. SEPAMIT [Concomitant]
     Route: 048
     Dates: start: 20070724, end: 20071027
  9. ASTOMIN [Concomitant]
     Route: 048
     Dates: start: 20070927, end: 20071027
  10. TAKEPRON [Concomitant]
     Route: 048
  11. MUCOSTA [Concomitant]
     Route: 048
  12. GASMOTIN [Concomitant]
     Route: 048
     Dates: start: 20070831, end: 20071027
  13. CYANOCOBALAMIN [Concomitant]
     Route: 048
     Dates: start: 20070831, end: 20071027
  14. VALTREX [Concomitant]
     Route: 048
     Dates: start: 20070918, end: 20070922
  15. NORVASC [Concomitant]
     Route: 048

REACTIONS (5)
  - DISSEMINATED INTRAVASCULAR COAGULATION [None]
  - DRUG INEFFECTIVE [None]
  - PLATELET COUNT DECREASED [None]
  - PNEUMONIA [None]
  - WHITE BLOOD CELL COUNT DECREASED [None]
